FAERS Safety Report 5138379-8 (Version None)
Quarter: 2006Q4

REPORT INFORMATION
  Report Type: 
  Country: None (occurrence: None)
  Receive Date: 20061024
  Receipt Date: 20061018
  Transmission Date: 20070319
  Serious: Yes (Death)
  Sender: FDA-Public Use
  Company Number: 163-20785-06091169

PATIENT
  Age: 69 Year
  Sex: Male

DRUGS (9)
  1. THALOMID [Suspect]
     Indication: MULTIPLE MYELOMA
     Dosage: 50-100 MG QD ORAL
     Route: 048
     Dates: start: 20060418, end: 20060901
  2. AREDIA [Concomitant]
  3. DECADRON [Concomitant]
  4. SYNTHROID [Concomitant]
  5. WELLBUTRIN XL [Concomitant]
  6. COMBIVENT [Concomitant]
  7. ALBUTEROL NEBULIZER (SALBUTAMOL) [Concomitant]
  8. UROXATEAL (ALFUZOSIN HYDROCHLORIDE) [Concomitant]
  9. DARVOCET-N 100 [Concomitant]

REACTIONS (2)
  - CHRONIC OBSTRUCTIVE PULMONARY DISEASE [None]
  - CONDITION AGGRAVATED [None]
